FAERS Safety Report 7822712-X (Version None)
Quarter: 2011Q4

REPORT INFORMATION
  Report Type: 
  Country: None (occurrence: None)
  Receive Date: 20111018
  Receipt Date: 20111011
  Transmission Date: 20120403
  Serious: Yes (Other)
  Sender: FDA-Public Use
  Company Number: US-ROCHE-1004326

PATIENT
  Age: 53 Year
  Sex: Female

DRUGS (9)
  1. LASIX [Concomitant]
  2. FLONASE [Concomitant]
  3. ADVAIR DISKUS 100/50 [Concomitant]
  4. POTASSIUM [Concomitant]
  5. RECLAST [Concomitant]
  6. SINGULAIR [Concomitant]
  7. SPIRIVA [Concomitant]
  8. CALCIUM CARBONATE [Concomitant]
  9. XOLAIR [Suspect]
     Indication: ASTHMA
     Route: 058
     Dates: start: 20110829, end: 20111006

REACTIONS (4)
  - HYPOTENSION [None]
  - PRODUCTIVE COUGH [None]
  - FLUSHING [None]
  - RASH [None]
